FAERS Safety Report 8770649 (Version 1)
Quarter: 2012Q4

REPORT INFORMATION
  Report Type: 
  Country: CO (occurrence: CO)
  Receive Date: 20120906
  Receipt Date: 20120906
  Transmission Date: 20130627
  Serious: Yes (Other)
  Sender: FDA-Public Use
  Company Number: CO-AMGEN-COLSP2012055034

PATIENT
  Age: 62 Year
  Sex: Female

DRUGS (2)
  1. ENBREL [Suspect]
     Indication: RHEUMATOID ARTHRITIS
     Dosage: 50 mg, weekly
     Route: 058
     Dates: start: 2010
  2. LOSARTAN [Concomitant]
     Indication: BLOOD PRESSURE
     Dosage: UNK
     Dates: start: 2002

REACTIONS (1)
  - Thyroid disorder [Recovering/Resolving]
